FAERS Safety Report 13877528 (Version 4)
Quarter: 2023Q1

REPORT INFORMATION
  Report Type: Spontaneous
  Country: US (occurrence: US)
  Receive Date: 20170817
  Receipt Date: 20230320
  Transmission Date: 20230418
  Serious: Yes (Other)
  Sender: FDA-Public Use
  Company Number: US-MLMSERVICE-20170808-0845030-1

PATIENT
  Age: 72 Year
  Sex: Male

DRUGS (4)
  1. FLUOROURACIL [Suspect]
     Active Substance: FLUOROURACIL
     Indication: Ductal adenocarcinoma of pancreas
     Dosage: UNK, CYCLIC
  2. IRINOTECAN HYDROCHLORIDE [Suspect]
     Active Substance: IRINOTECAN HYDROCHLORIDE
     Indication: Ductal adenocarcinoma of pancreas
     Dosage: UNK, CYCLIC
  3. OXALIPLATIN [Suspect]
     Active Substance: OXALIPLATIN
     Indication: Ductal adenocarcinoma of pancreas
     Dosage: UNK, CYCLIC
  4. LEUCOVORIN [Suspect]
     Active Substance: LEUCOVORIN
     Indication: Ductal adenocarcinoma of pancreas
     Dosage: UNK, CYCLIC

REACTIONS (2)
  - Haematochezia [Recovering/Resolving]
  - Fatigue [Unknown]
